FAERS Safety Report 5970606-7 (Version None)
Quarter: 2008Q4

REPORT INFORMATION
  Report Type: 
  Country: None (occurrence: None)
  Receive Date: 20081126
  Receipt Date: 20081031
  Transmission Date: 20090506
  Serious: No
  Sender: FDA-Public Use
  Company Number: US-ABBOTT-08P-163-0485437-00

PATIENT
  Sex: Male

DRUGS (7)
  1. SIMCOR [Suspect]
     Indication: HYPERCHOLESTEROLAEMIA
     Dosage: ONE DAILY AT NIGHT
     Route: 048
     Dates: start: 20081013, end: 20081014
  2. SIMCOR [Suspect]
     Dosage: 500MG/20MG, ONE DAILY AT NIGHT
     Dates: start: 20081014, end: 20081021
  3. SIMCOR [Suspect]
     Dosage: ONE DAILY AT NIGHT
     Dates: start: 20081022
  4. CITALOPRAM HYDROBROMIDE [Concomitant]
     Indication: DRUG USE FOR UNKNOWN INDICATION
  5. M.V.I. [Concomitant]
     Indication: DRUG USE FOR UNKNOWN INDICATION
  6. ACETYLSALICYLIC ACID SRT [Concomitant]
     Indication: DRUG USE FOR UNKNOWN INDICATION
  7. DIETARY SUPPLEMENT WITH EPHEDRA [Concomitant]
     Indication: DRUG USE FOR UNKNOWN INDICATION

REACTIONS (1)
  - FLUSHING [None]
